FAERS Safety Report 5938648-5 (Version None)
Quarter: 2008Q4

REPORT INFORMATION
  Report Type: 
  Country: None (occurrence: None)
  Receive Date: 20081103
  Receipt Date: 20081024
  Transmission Date: 20090506
  Serious: Yes (Life-Threatening, Hospitalization)
  Sender: FDA-Public Use
  Company Number: CA-ROCHE-529454

PATIENT
  Sex: Male
  Weight: 71.2 kg

DRUGS (22)
  1. METHOXY POLYETHYLENE GLYCOL-EPOETIN BETA [Suspect]
     Dosage: UNITS ALSO REPORTED AS: 0.26. DOSE FORM REPORTED AS: SOLUTION. DISCONTINUED
     Route: 042
     Dates: start: 20050824, end: 20071108
  2. METHOXY POLYETHYLENE GLYCOL-EPOETIN BETA [Suspect]
     Route: 042
  3. NITROGLYCERIN [Concomitant]
     Dosage: NITRO PATCH
     Dates: start: 20071030
  4. NITROGLYCERIN [Concomitant]
     Dates: start: 20040216, end: 20071127
  5. CALCIUM ELEMENTAL [Concomitant]
     Dosage: REPORTED AS: CALCIUM ELEMENT.
     Dates: start: 20040216
  6. ACETAMINOPHEN [Concomitant]
     Dates: start: 20040216
  7. ACETAMINOPHEN [Concomitant]
     Dates: start: 20071102, end: 20071126
  8. ALLOPURINOL [Concomitant]
     Dates: start: 20040216
  9. ALLOPURINOL [Concomitant]
     Dates: start: 20070216
  10. ATORVASTATIN [Concomitant]
     Dates: start: 20040216
  11. ATORVASTATIN [Concomitant]
     Dosage: LIPITOR
     Dates: start: 20071030
  12. MULTI-VITAMINS [Concomitant]
     Dosage: REPORTED AS: MULTIPLE VITAMINS RENAL.
     Dates: start: 20040810
  13. TERAZOSIN HCL [Concomitant]
     Dates: start: 20040216
  14. HEPARIN [Concomitant]
     Dates: start: 20040213
  15. TYLENOL (CAPLET) [Concomitant]
     Dates: start: 20050620
  16. RABEPRAZOLE SODIUM [Concomitant]
     Dates: start: 20060425
  17. FUROSEMIDE [Concomitant]
     Dates: start: 20040216
  18. FUROSEMIDE [Concomitant]
     Dates: start: 20070216
  19. FUROSEMIDE [Concomitant]
     Dosage: LASIX
     Dates: start: 20071030
  20. CANDESARTAN CILEXETIL [Concomitant]
     Dates: start: 20070409
  21. WARFARIN SODIUM [Concomitant]
     Dates: start: 20070214
  22. KAYEXALATE [Concomitant]
     Dates: start: 20071030

REACTIONS (2)
  - ANGINA UNSTABLE [None]
  - HAEMORRHAGE [None]
